FAERS Safety Report 18628403 (Version 1)
Quarter: 2020Q4

REPORT INFORMATION
  Report Type: Spontaneous
  Country: GB (occurrence: GB)
  Receive Date: 20201217
  Receipt Date: 20201217
  Transmission Date: 20210114
  Serious: Yes (Other)
  Sender: FDA-Public Use
  Company Number: GB-MYLANLABS-2020M1101689

PATIENT
  Age: 78 Year
  Sex: Female
  Weight: 80 kg

DRUGS (7)
  1. ALENDRONATE [Suspect]
     Active Substance: ALENDRONATE SODIUM
     Indication: PRODUCT USED FOR UNKNOWN INDICATION
     Dosage: 70 MILLIGRAM, QW
     Route: 048
     Dates: start: 20200907
  2. ADCAL                              /07357001/ [Concomitant]
     Active Substance: CALCIUM CARBONATE
     Dosage: 2 DOSAGE FORM, QD
     Dates: start: 20200907
  3. CETIRIZINE [Concomitant]
     Active Substance: CETIRIZINE HYDROCHLORIDE
     Dosage: 1 DOSAGE FORM, QD
     Dates: start: 20201109
  4. TRIMETHOPRIM. [Concomitant]
     Active Substance: TRIMETHOPRIM
     Dosage: 2 DOSAGE FORM, QD
     Dates: start: 20201028, end: 20201104
  5. AMITRIPTYLINE HYDROCHLORIDE. [Concomitant]
     Active Substance: AMITRIPTYLINE HYDROCHLORIDE
     Dosage: 1 DOSAGE FORM, QD(AT NIGHT, CAN BE INCREASED TO T)
     Dates: start: 20201013
  6. DERMOL                             /01330701/ [Concomitant]
     Dosage: UNK(USE AS DIRECTED)
     Dates: start: 20201109
  7. PREDNISOLONE. [Concomitant]
     Active Substance: PREDNISOLONE
     Dosage: 2 DOSAGE FORM, QD(AS PER RHEUMATOLOGY)
     Dates: start: 20200930

REACTIONS (2)
  - Peripheral swelling [Unknown]
  - Deafness unilateral [Unknown]

NARRATIVE: CASE EVENT DATE: 20201109
